FAERS Safety Report 8156443-6 (Version None)
Quarter: 2012Q1

REPORT INFORMATION
  Report Type: 
  Country: None (occurrence: None)
  Receive Date: 20120216
  Receipt Date: 20120131
  Transmission Date: 20120608
  Serious: Yes (Life-Threatening)
  Sender: FDA-Public Use
  Company Number: FK201200293

PATIENT
  Age: 2 Day
  Sex: Female

DRUGS (1)
  1. LIDOCAINE / ADRENALINE (MANUFACTURER UNKNOWN) (LIDOCAINE/EPINEPHRINE) [Suspect]
     Indication: PERIOPERATIVE ANALGESIA
     Dosage: 0.5 ML, INTRADERMAL
     Route: 023

REACTIONS (2)
  - CYANOSIS [None]
  - METHAEMOGLOBINAEMIA [None]
